FAERS Safety Report 18498916 (Version 2)
Quarter: 2021Q1

REPORT INFORMATION
  Report Type: Spontaneous
  Country: US (occurrence: US)
  Receive Date: 20201112
  Receipt Date: 20210105
  Transmission Date: 20210419
  Serious: Yes (Hospitalization)
  Sender: FDA-Public Use
  Company Number: US-TEVA-2020-US-1846397

PATIENT
  Age: 26 Year
  Sex: Male

DRUGS (2)
  1. FENTANYL. [Suspect]
     Active Substance: FENTANYL
     Indication: DRUG ABUSE
     Dosage: HE REPORTED TO HAVE SNORTED CRUSHED FENTANYL INTRANASALLY
     Route: 045
  2. FENTANYL. [Suspect]
     Active Substance: FENTANYL
     Indication: OVERDOSE

REACTIONS (12)
  - Leukocytosis [Recovering/Resolving]
  - Pneumonitis chemical [Recovering/Resolving]
  - Unresponsive to stimuli [Recovering/Resolving]
  - Hypoxia [Recovering/Resolving]
  - Lactic acidosis [Recovering/Resolving]
  - Tachypnoea [Recovering/Resolving]
  - Meningococcal infection [Recovering/Resolving]
  - Meningococcal bacteraemia [Recovering/Resolving]
  - Respiratory failure [Recovering/Resolving]
  - Bradypnoea [Recovering/Resolving]
  - Drug abuse [Unknown]
  - Overdose [Unknown]
